FAERS Safety Report 9640620 (Version 1)
Quarter: 2013Q4

REPORT INFORMATION
  Report Type: Spontaneous
  Country: US (occurrence: US)
  Receive Date: 20131023
  Receipt Date: 20131023
  Transmission Date: 20140711
  Serious: No
  Sender: FDA-Public Use
  Company Number: US-ABBVIE-13P-163-1102319-00

PATIENT
  Age: 22 Year
  Sex: Female
  Weight: 71.73 kg

DRUGS (3)
  1. LUPRON DEPOT [Suspect]
     Indication: ENDOMETRIOSIS
     Route: 030
     Dates: start: 20130418, end: 20130418
  2. LEXAPRO [Concomitant]
     Indication: DEPRESSION
  3. AYGESTIN [Concomitant]
     Indication: HORMONE THERAPY
     Dates: start: 20130418

REACTIONS (5)
  - Rash generalised [Recovered/Resolved]
  - Pruritus generalised [Recovered/Resolved]
  - Headache [Recovering/Resolving]
  - Dizziness [Recovered/Resolved]
  - Dizziness [Recovered/Resolved]
